FAERS Safety Report 5104661-3 (Version None)
Quarter: 2006Q3

REPORT INFORMATION
  Report Type: 
  Country: None (occurrence: None)
  Receive Date: 20060911
  Receipt Date: 20060901
  Transmission Date: 20061208
  Serious: Yes (Hospitalization)
  Sender: FDA-Public Use
  Company Number: 2006US001941

PATIENT
  Age: 46 Year
  Sex: Female

DRUGS (1)
  1. AMBISOME [Suspect]
     Indication: DRUG USE FOR UNKNOWN INDICATION
     Dosage: 150 MG, UID/QD, IV NOS
     Route: 042
     Dates: start: 20060728, end: 20060730

REACTIONS (2)
  - PANCREATITIS ACUTE [None]
  - SPLENOMEGALY [None]
